FAERS Safety Report 5755686-6 (Version None)
Quarter: 2008Q2

REPORT INFORMATION
  Report Type: 
  Country: None (occurrence: None)
  Receive Date: 20080530
  Receipt Date: 20080530
  Transmission Date: 20081010
  Serious: Yes (Hospitalization)
  Sender: FDA-Public Use
  Company Number: None

PATIENT
  Age: 72 Year
  Sex: Male
  Weight: 108.86 kg

DRUGS (1)
  1. WARFARIN SODIUM [Suspect]
     Indication: ATRIAL FIBRILLATION
     Dosage: 2.5 MG EVERY DAY PO
     Route: 048
     Dates: start: 20080311

REACTIONS (8)
  - DIARRHOEA [None]
  - DYSGEUSIA [None]
  - FAECES DISCOLOURED [None]
  - INCORRECT DOSE ADMINISTERED [None]
  - INTERNATIONAL NORMALISED RATIO ABNORMAL [None]
  - MALAISE [None]
  - ORAL INTAKE REDUCED [None]
  - THERAPEUTIC AGENT TOXICITY [None]
